FAERS Safety Report 7090968-X (Version None)
Quarter: 2010Q4

REPORT INFORMATION
  Report Type: 
  Country: None (occurrence: None)
  Receive Date: 20101109
  Receipt Date: 20101029
  Transmission Date: 20110411
  Serious: Yes (Life-Threatening)
  Sender: FDA-Public Use
  Company Number: JP-JNJFOC-20101100756

PATIENT
  Age: 57 Year
  Sex: Female
  Weight: 52 kg

DRUGS (18)
  1. REMICADE [Suspect]
     Indication: PSORIATIC ARTHROPATHY
     Route: 042
  2. REMICADE [Suspect]
     Route: 042
  3. REMICADE [Suspect]
     Route: 042
  4. METHOTREXATE [Suspect]
     Indication: RHEUMATOID ARTHRITIS
     Route: 048
  5. METHOTREXATE [Suspect]
     Route: 048
  6. METHOTREXATE [Suspect]
     Route: 048
  7. METHOTREXATE [Suspect]
     Indication: PSORIATIC ARTHROPATHY
     Route: 048
  8. METHOTREXATE [Suspect]
     Route: 048
  9. METHOTREXATE [Suspect]
     Route: 048
  10. NEOISCOTIN [Concomitant]
     Indication: ANTIBIOTIC PROPHYLAXIS
     Route: 048
  11. ATARAX [Concomitant]
     Indication: PSORIATIC ARTHROPATHY
     Route: 048
  12. DOVONEX [Concomitant]
     Indication: PSORIATIC ARTHROPATHY
  13. PARIET [Concomitant]
     Indication: PROPHYLAXIS
     Route: 048
  14. CELECOX [Concomitant]
     Indication: PSORIATIC ARTHROPATHY
     Route: 048
  15. FOLIAMIN [Concomitant]
     Indication: PROPHYLAXIS
     Route: 048
  16. PYRIDOXAL PHOSPHATE [Concomitant]
     Indication: PROPHYLAXIS
     Route: 048
  17. CALONAL [Concomitant]
     Indication: PROPHYLAXIS
     Route: 048
  18. ALLEGRA [Concomitant]
     Indication: PROPHYLAXIS
     Route: 048

REACTIONS (1)
  - PNEUMOCYSTIS JIROVECI PNEUMONIA [None]
